FAERS Safety Report 8422419-4 (Version None)
Quarter: 2012Q2

REPORT INFORMATION
  Report Type: 
  Country: None (occurrence: None)
  Receive Date: 20120608
  Receipt Date: 20120529
  Transmission Date: 20120825
  Serious: No
  Sender: FDA-Public Use
  Company Number: US-ROXANE LABORATORIES, INC.-2012-RO-01318RO

PATIENT
  Age: 50 Year
  Sex: Female

DRUGS (1)
  1. BUTORPHANOL TARATRATE [Suspect]
     Indication: MIGRAINE
     Route: 045
     Dates: start: 20110201

REACTIONS (1)
  - DRUG INEFFECTIVE [None]
